FAERS Safety Report 15804935 (Version 2)
Quarter: 2019Q2

REPORT INFORMATION
  Report Type: Spontaneous
  Country: US (occurrence: US)
  Receive Date: 20190110
  Receipt Date: 20190411
  Transmission Date: 20190711
  Serious: No
  Sender: FDA-Public Use
  Company Number: US-SHIRE-US201900710

PATIENT
  Age: 31 Year
  Sex: Male

DRUGS (2)
  1. VYVANSE [Suspect]
     Active Substance: LISDEXAMFETAMINE DIMESYLATE
     Indication: PSYCHOMOTOR HYPERACTIVITY
  2. VYVANSE [Suspect]
     Active Substance: LISDEXAMFETAMINE DIMESYLATE
     Indication: HYPERSOMNIA
     Dosage: 20 MILLILITER, 3X A WEEK
     Route: 048
     Dates: start: 201810

REACTIONS (2)
  - Chronic fatigue syndrome [Unknown]
  - Drug ineffective [Unknown]
